FAERS Safety Report 6612247-4 (Version None)
Quarter: 2010Q1

REPORT INFORMATION
  Report Type: 
  Country: None (occurrence: None)
  Receive Date: 20100303
  Receipt Date: 20100216
  Transmission Date: 20100710
  Serious: Yes (Other)
  Sender: FDA-Public Use
  Company Number: GB-EISAI INC.-E0800-00043-SPO-GB

PATIENT
  Sex: Female

DRUGS (1)
  1. SALAGEN [Suspect]
     Dosage: UNKNOWN
     Route: 048

REACTIONS (4)
  - COLD SWEAT [None]
  - HEPATIC CIRRHOSIS [None]
  - NASAL POLYPS [None]
  - POLLAKIURIA [None]
